FAERS Safety Report 9286340 (Version 1)
Quarter: 2013Q2

REPORT INFORMATION
  Report Type: Spontaneous
  Country: BR (occurrence: BR)
  Receive Date: 20130513
  Receipt Date: 20130513
  Transmission Date: 20140414
  Serious: Yes (Other)
  Sender: FDA-Public Use
  Company Number: BR-PFIZER INC-2013144773

PATIENT
  Age: 65 Year
  Sex: Female

DRUGS (7)
  1. LIPITOR [Suspect]
     Indication: BLOOD DISORDER
     Dosage: 40 MG (ONE TABLET), 1X/DAY
     Route: 048
     Dates: start: 201209
  2. ALLOPURINOL [Concomitant]
     Indication: BLOOD URIC ACID
  3. ASPIRINA PREVENT [Concomitant]
     Indication: BLOOD DISORDER
  4. CAPTOPRIL [Concomitant]
     Indication: BLOOD PRESSURE
  5. BROMAZEPAM [Concomitant]
     Indication: RELAXATION THERAPY
  6. FLORATIL [Concomitant]
     Indication: FUNCTIONAL GASTROINTESTINAL DISORDER
  7. HIGROTON [Concomitant]
     Indication: BLOOD PRESSURE

REACTIONS (1)
  - Foot fracture [Unknown]
